FAERS Safety Report 9327278 (Version 1)
Quarter: 2013Q2

REPORT INFORMATION
  Report Type: Spontaneous
  Country: US (occurrence: US)
  Receive Date: 20130604
  Receipt Date: 20130604
  Transmission Date: 20140414
  Serious: Yes (Other)
  Sender: FDA-Public Use
  Company Number: US-AMGEN-USASP2013037185

PATIENT
  Age: 59 Year
  Sex: Female

DRUGS (1)
  1. ENBREL [Suspect]
     Indication: PSORIATIC ARTHROPATHY
     Dosage: 50 MG, QWK
     Dates: start: 20130515, end: 20130515

REACTIONS (6)
  - Cellulitis [Not Recovered/Not Resolved]
  - Eyelid oedema [Not Recovered/Not Resolved]
  - Eye pain [Not Recovered/Not Resolved]
  - Erythema [Not Recovered/Not Resolved]
  - Arthropod bite [Not Recovered/Not Resolved]
  - Swelling [Not Recovered/Not Resolved]
